FAERS Safety Report 9550698 (Version 2)
Quarter: 2014Q1

REPORT INFORMATION
  Report Type: Report from Study
  Country: US (occurrence: US)
  Receive Date: 20130924
  Receipt Date: 20140121
  Transmission Date: 20141002
  Serious: Yes (Other)
  Sender: FDA-Public Use
  Company Number: US-SANOFI-AVENTIS-2013SA017670

PATIENT
  Age: 65 Year
  Sex: Female

DRUGS (5)
  1. AUBAGIO [Suspect]
     Indication: MULTIPLE SCLEROSIS
     Route: 048
     Dates: start: 20130201
  2. DIOVANE [Concomitant]
  3. NEBIVOLOL [Concomitant]
  4. NEXIUM [Concomitant]
  5. LEVOFLOXACIN [Concomitant]

REACTIONS (7)
  - Atypical pneumonia [Unknown]
  - Nasopharyngitis [Unknown]
  - Acne [Not Recovered/Not Resolved]
  - Streptococcal infection [Unknown]
  - Oropharyngeal pain [Not Recovered/Not Resolved]
  - Nausea [Not Recovered/Not Resolved]
  - Diarrhoea [Not Recovered/Not Resolved]
